FAERS Safety Report 5065367-2 (Version None)
Quarter: 2006Q3

REPORT INFORMATION
  Report Type: 
  Country: None (occurrence: None)
  Receive Date: 20060707
  Receipt Date: 20060330
  Transmission Date: 20061208
  Serious: Yes (Life-Threatening, Hospitalization)
  Sender: FDA-Public Use
  Company Number: SUS1-2006-00375

PATIENT
  Age: 25 Year
  Sex: Female

DRUGS (2)
  1. PENTASA [Suspect]
     Indication: COLITIS ULCERATIVE
     Dosage: 1 G, 3X/DAY:TID, ORAL
     Route: 048
     Dates: start: 20051221, end: 20051223
  2. MESALAZINE [Concomitant]

REACTIONS (1)
  - PANCREATITIS ACUTE [None]
